FAERS Safety Report 8314171-8 (Version None)
Quarter: 2012Q2

REPORT INFORMATION
  Report Type: 
  Country: None (occurrence: None)
  Receive Date: 20120424
  Receipt Date: 20120416
  Transmission Date: 20120825
  Serious: No
  Sender: FDA-Public Use
  Company Number: 2012SP020174

PATIENT
  Age: 30 Year
  Sex: Female

DRUGS (4)
  1. DIAZEPAM [Concomitant]
  2. TRANXENE [Concomitant]
  3. SYCREST (ASENAPINE /05706901/) [Suspect]
     Indication: BIPOLAR II DISORDER
     Dosage: 5 MG; QD; SL, 2.5 MG; QD
     Route: 060
  4. PROZAC [Concomitant]

REACTIONS (2)
  - BLOOD PRESSURE DECREASED [None]
  - OFF LABEL USE [None]
